FAERS Safety Report 10895582 (Version 1)
Quarter: 2015Q1

REPORT INFORMATION
  Report Type: Spontaneous
  Country: US (occurrence: US)
  Receive Date: 20150306
  Receipt Date: 20150306
  Transmission Date: 20150721
  Serious: No
  Sender: FDA-Public Use
  Company Number: US-AMGEN-USASP2015013483

PATIENT
  Age: 73 Year
  Sex: Female

DRUGS (1)
  1. SENSIPAR [Suspect]
     Active Substance: CINACALCET HYDROCHLORIDE
     Indication: HYPERPARATHYROIDISM PRIMARY
     Dosage: 30 MG, BID
     Route: 065
     Dates: start: 201411

REACTIONS (5)
  - Tremor [Recovering/Resolving]
  - Tooth disorder [Unknown]
  - Rotator cuff syndrome [Unknown]
  - Muscle spasms [Unknown]
  - Pain in extremity [Unknown]
